FAERS Safety Report 25216332 (Version 1)
Quarter: 2025Q2

REPORT INFORMATION
  Report Type: Report from Study
  Country: CN (occurrence: CN)
  Receive Date: 20250418
  Receipt Date: 20250418
  Transmission Date: 20250716
  Serious: Yes (Other)
  Sender: GILEAD
  Company Number: CN-GILEAD-2025-0710787

PATIENT
  Age: 57 Year
  Sex: Female

DRUGS (21)
  1. SACITUZUMAB GOVITECAN-HZIY [Suspect]
     Active Substance: SACITUZUMAB GOVITECAN-HZIY
     Indication: Ovarian cancer
     Dosage: 300MG, D1, D8 Q3W(EVERY 3 WEEKS)
     Route: 065
     Dates: start: 20231013
  2. SACITUZUMAB GOVITECAN-HZIY [Suspect]
     Active Substance: SACITUZUMAB GOVITECAN-HZIY
     Dosage: 300MG, D1, D8 Q3W(EVERY 3 WEEKS)
     Route: 065
     Dates: start: 20231103
  3. SACITUZUMAB GOVITECAN-HZIY [Suspect]
     Active Substance: SACITUZUMAB GOVITECAN-HZIY
     Dosage: 300MG, D1, D8 Q3W(EVERY 3 WEEKS)
     Route: 065
     Dates: start: 20231124
  4. SACITUZUMAB GOVITECAN-HZIY [Suspect]
     Active Substance: SACITUZUMAB GOVITECAN-HZIY
     Dosage: 315MG, D1, D8 Q3W
     Route: 065
     Dates: start: 20231218
  5. SACITUZUMAB GOVITECAN-HZIY [Suspect]
     Active Substance: SACITUZUMAB GOVITECAN-HZIY
     Dosage: 315MG, D1, D8 Q3W
     Route: 065
     Dates: start: 20240109
  6. SACITUZUMAB GOVITECAN-HZIY [Suspect]
     Active Substance: SACITUZUMAB GOVITECAN-HZIY
     Dosage: 315MG, D1, D8 Q3W
     Route: 065
     Dates: start: 20240131
  7. SACITUZUMAB GOVITECAN-HZIY [Suspect]
     Active Substance: SACITUZUMAB GOVITECAN-HZIY
     Dosage: 315MG, D1, D8 Q3W
     Route: 065
     Dates: start: 20240222
  8. PEMBROLIZUMAB [Concomitant]
     Active Substance: PEMBROLIZUMAB
     Dosage: 200 MG, Q3WK
     Route: 065
     Dates: start: 20231013
  9. PEMBROLIZUMAB [Concomitant]
     Active Substance: PEMBROLIZUMAB
     Dosage: 200 MG, Q3WK
     Route: 065
     Dates: start: 20231103
  10. PEMBROLIZUMAB [Concomitant]
     Active Substance: PEMBROLIZUMAB
     Dosage: 200 MG, Q3WK
     Route: 065
     Dates: start: 20231124
  11. PEMBROLIZUMAB [Concomitant]
     Active Substance: PEMBROLIZUMAB
     Dosage: 200 MG, Q3WK
     Route: 065
     Dates: start: 20231218
  12. PEMBROLIZUMAB [Concomitant]
     Active Substance: PEMBROLIZUMAB
     Dosage: 200 MG, Q3WK
     Route: 065
     Dates: start: 20240109
  13. PEMBROLIZUMAB [Concomitant]
     Active Substance: PEMBROLIZUMAB
     Dosage: 200 MG, Q3WK
     Route: 065
     Dates: start: 20240131
  14. PEMBROLIZUMAB [Concomitant]
     Active Substance: PEMBROLIZUMAB
     Dosage: 200 MG, Q3WK
     Route: 065
     Dates: start: 20240222
  15. CISPLATIN [Concomitant]
     Active Substance: CISPLATIN
     Dosage: 25 MG, Q1WK
     Route: 065
     Dates: start: 20231013
  16. CISPLATIN [Concomitant]
     Active Substance: CISPLATIN
     Dosage: 25 MG, Q1WK
     Route: 065
     Dates: start: 20231103
  17. CISPLATIN [Concomitant]
     Active Substance: CISPLATIN
     Dosage: 25 MG, Q1WK
     Route: 065
     Dates: start: 20231124
  18. CISPLATIN [Concomitant]
     Active Substance: CISPLATIN
     Dosage: 25 MG, Q1WK
     Route: 065
     Dates: start: 20231218
  19. CISPLATIN [Concomitant]
     Active Substance: CISPLATIN
     Dosage: 25 MG, Q1WK
     Route: 065
     Dates: start: 20240109
  20. CISPLATIN [Concomitant]
     Active Substance: CISPLATIN
     Dosage: 25 MG, Q1WK
     Route: 065
     Dates: start: 20240131
  21. CISPLATIN [Concomitant]
     Active Substance: CISPLATIN
     Dosage: 25 MG, Q1WK
     Route: 065
     Dates: start: 20240222

REACTIONS (2)
  - Myelosuppression [Recovering/Resolving]
  - Product use in unapproved indication [Unknown]
